FAERS Safety Report 8542676-3 (Version None)
Quarter: 2012Q3

REPORT INFORMATION
  Report Type: 
  Country: None (occurrence: None)
  Receive Date: 20120727
  Receipt Date: 20120718
  Transmission Date: 20120928
  Serious: Yes (Other)
  Sender: FDA-Public Use
  Company Number: JP-BRISTOL-MYERS SQUIBB COMPANY-16784019

PATIENT
  Age: 82 Year
  Sex: Female

DRUGS (1)
  1. METFORMIN HCL [Suspect]
     Indication: DIABETES MELLITUS
     Dosage: 750MG:UNK-UNK 1000MG:UNK-13JUL12(3WK)
     Route: 048
     Dates: end: 20120713

REACTIONS (1)
  - RENAL IMPAIRMENT [None]
